FAERS Safety Report 9822887 (Version 3)
Quarter: 2014Q4

REPORT INFORMATION
  Report Type: Spontaneous
  Country: FR (occurrence: FR)
  Receive Date: 20140116
  Receipt Date: 20141027
  Transmission Date: 20150529
  Serious: Yes (Hospitalization, Other)
  Sender: FDA-Public Use
  Company Number: FR-US-EMD SERONO, INC.-7261734

PATIENT
  Age: 32 Year
  Sex: Female
  Weight: 95 kg

DRUGS (6)
  1. OVITRELLE [Concomitant]
     Active Substance: CHORIOGONADOTROPIN ALFA
     Indication: PRODUCT USED FOR UNKNOWN INDICATION
     Dosage: 5 CYCLES
     Dates: start: 201205
  2. VITAMIN D3 [Concomitant]
     Active Substance: CHOLECALCIFEROL
     Indication: PRODUCT USED FOR UNKNOWN INDICATION
  3. SPASFON                            /00765801/ [Concomitant]
     Active Substance: PHLOROGLUCINOL\1,3,5-TRIMETHOXYBENZENE
     Indication: PRODUCT USED FOR UNKNOWN INDICATION
     Dates: start: 20121017, end: 20121120
  4. PUREGON                            /01348901/ [Suspect]
     Active Substance: FOLLITROPIN
     Indication: INFERTILITY
     Dosage: DAY 3 TO DAY 12/ DAY 13 TO DAY 14
     Route: 058
     Dates: end: 201203
  5. GONAL-F [Suspect]
     Active Substance: FOLLITROPIN
     Indication: INFERTILITY
     Route: 058
  6. MOPRAL                             /00661201/ [Concomitant]
     Active Substance: OMEPRAZOLE SODIUM
     Indication: PRODUCT USED FOR UNKNOWN INDICATION
     Dates: start: 20121017, end: 20121120

REACTIONS (5)
  - Palpitations [Unknown]
  - Stillbirth [Recovered/Resolved]
  - Cerebrovascular accident [Unknown]
  - Vomiting [Unknown]
  - Placental insufficiency [Unknown]

NARRATIVE: CASE EVENT DATE: 2012
